FAERS Safety Report 7514903-2 (Version None)
Quarter: 2011Q2

REPORT INFORMATION
  Report Type: 
  Country: None (occurrence: None)
  Receive Date: 20110601
  Receipt Date: 20110517
  Transmission Date: 20111010
  Serious: Yes (Other)
  Sender: FDA-Public Use
  Company Number: CA-JNJFOC-20110508227

PATIENT
  Sex: Female
  Weight: 94 kg

DRUGS (3)
  1. REMICADE [Suspect]
     Route: 042
     Dates: start: 20071201
  2. ASACOL [Concomitant]
  3. REMICADE [Suspect]
     Indication: CROHN'S DISEASE
     Dosage: 23RD INFUSION
     Route: 042
     Dates: start: 20110517

REACTIONS (6)
  - PALPITATIONS [None]
  - CHEST PAIN [None]
  - INFUSION RELATED REACTION [None]
  - SLEEP DISORDER [None]
  - DIZZINESS [None]
  - ARRHYTHMIA SUPRAVENTRICULAR [None]
